FAERS Safety Report 9285007 (Version 2)
Quarter: 2013Q2

REPORT INFORMATION
  Report Type: Other
  Country: GB (occurrence: GB)
  Receive Date: 20130513
  Receipt Date: 20130624
  Transmission Date: 20140414
  Serious: No
  Sender: FDA-Public Use
  Company Number: PHFR2013GB002738

PATIENT
  Sex: Male

DRUGS (2)
  1. CLOZARIL [Suspect]
     Indication: HEPATITIS C
     Dosage: UNK
     Route: 048
     Dates: start: 20120823
  2. CLOZARIL [Suspect]
     Indication: OFF LABEL USE

REACTIONS (1)
  - No adverse event [Unknown]
